FAERS Safety Report 5284276-7 (Version None)
Quarter: 2007Q2

REPORT INFORMATION
  Report Type: 
  Country: None (occurrence: None)
  Receive Date: 20070403
  Receipt Date: 20070322
  Transmission Date: 20071010
  Serious: Yes (Hospitalization)
  Sender: FDA-Public Use
  Company Number: PHHO2007JP05478

PATIENT
  Age: 40 Year
  Sex: Male
  Weight: 58 kg

DRUGS (8)
  1. SIMULECT [Suspect]
     Indication: RENAL TRANSPLANT
     Dosage: 20 MG, ONCE/SINGLE
     Route: 042
     Dates: start: 20060411, end: 20060411
  2. SIMULECT [Suspect]
     Dosage: 20 MEQ/KG, ONCE/SINGLE
     Route: 042
     Dates: start: 20060415, end: 20060415
  3. NEORAL [Suspect]
     Indication: RENAL TRANSPLANT
     Dosage: 400 MG DAILY
     Route: 048
     Dates: start: 20060409, end: 20060410
  4. NEORAL [Suspect]
     Dosage: 400 MG DAILY
     Route: 048
     Dates: start: 20060412
  5. MIZORIBINE [Suspect]
     Indication: RENAL TRANSPLANT
     Dosage: 300 MG DAILY
     Route: 048
     Dates: start: 20060412
  6. PREDNISOLONE [Suspect]
     Indication: RENAL TRANSPLANT
     Dosage: 50 MG DAILY
     Route: 048
     Dates: start: 20060412
  7. SANDIMMUNE [Concomitant]
     Indication: RENAL TRANSPLANT
     Dates: start: 20060411, end: 20060411
  8. PREDONINE [Concomitant]
     Indication: RENAL TRANSPLANT
     Dates: start: 20060411, end: 20060411

REACTIONS (4)
  - CYTOMEGALOVIRUS INFECTION [None]
  - URINARY RETENTION [None]
  - URINARY TRACT OBSTRUCTION [None]
  - URINE OUTPUT DECREASED [None]
